FAERS Safety Report 10247109 (Version 1)
Quarter: 2014Q2

REPORT INFORMATION
  Report Type: Spontaneous
  Country: US (occurrence: US)
  Receive Date: 20140619
  Receipt Date: 20140619
  Transmission Date: 20141212
  Serious: Yes (Death, Other)
  Sender: FDA-Public Use
  Company Number: US-009507513-1406USA009512

PATIENT
  Sex: Male

DRUGS (1)
  1. JANUVIA [Suspect]
     Dosage: UNK
     Route: 048
     Dates: start: 20091206, end: 20131016

REACTIONS (2)
  - Pancreatic carcinoma [Unknown]
  - Death [Fatal]
